FAERS Safety Report 8760653 (Version 1)
Quarter: 2012Q4

REPORT INFORMATION
  Report Type: 
  Country: FR (occurrence: FR)
  Receive Date: 20120830
  Receipt Date: 20120830
  Transmission Date: 20130627
  Serious: Yes (Other)
  Sender: FDA-Public Use
  Company Number: FR-BAYER-2012-089288

PATIENT
  Age: 53 Year
  Sex: Male

DRUGS (3)
  1. CIFLOX [Suspect]
     Indication: PROSTATITIS
     Dosage: 500 mg, BID
     Route: 048
     Dates: start: 20120613, end: 20120625
  2. BACTRIM FORTE [Suspect]
     Indication: PROSTATITIS
     Dosage: 1 DF, BID
     Route: 048
     Dates: start: 20120626, end: 20120702
  3. CEFTRIAXONE [Concomitant]
     Indication: PROSTATITIS
     Dosage: UNK
     Dates: start: 20120607, end: 20120613

REACTIONS (6)
  - Hyperthermia [Recovered/Resolved]
  - Asthenia [Recovered/Resolved]
  - Pruritus [Recovered/Resolved]
  - Decreased appetite [Recovered/Resolved]
  - Hepatitis [Recovered/Resolved]
  - Thrombocytopenia [Recovered/Resolved]
